FAERS Safety Report 6216028-5 (Version None)
Quarter: 2009Q2

REPORT INFORMATION
  Report Type: 
  Country: None (occurrence: None)
  Receive Date: 20090605
  Receipt Date: 20090525
  Transmission Date: 20091009
  Serious: Yes (Other)
  Sender: FDA-Public Use
  Company Number: PHHY2009DE20871

PATIENT

DRUGS (4)
  1. PAMIDRONATE DISODIUM [Suspect]
     Dosage: EVERY 4 WEEKS
     Dates: start: 20000101, end: 20060301
  2. ZOLEDRONIC ACID [Suspect]
     Dosage: EVERY 3 WEEKS
     Dates: start: 20000101, end: 20060301
  3. IBANDRONATE SODIUM [Suspect]
     Dosage: EVERY 4 WEEKS
     Dates: start: 20000101, end: 20060301
  4. TAMOXIFEN CITRATE [Concomitant]

REACTIONS (1)
  - OSTEONECROSIS [None]
